FAERS Safety Report 12179882 (Version 1)
Quarter: 2016Q1

REPORT INFORMATION
  Report Type: Spontaneous
  Country: US (occurrence: US)
  Receive Date: 20160315
  Receipt Date: 20160315
  Transmission Date: 20160526
  Serious: Yes (Other)
  Sender: FDA-Public Use
  Company Number: US-ASTRAZENECA-2016SE26077

PATIENT
  Sex: Male

DRUGS (3)
  1. TOPROL XL [Suspect]
     Active Substance: METOPROLOL SUCCINATE
     Route: 048
  2. BRILINTA [Suspect]
     Active Substance: TICAGRELOR
     Route: 048
  3. CRESTOR [Suspect]
     Active Substance: ROSUVASTATIN CALCIUM
     Route: 048

REACTIONS (3)
  - Arterial occlusive disease [Recovered/Resolved]
  - Pain [Unknown]
  - Fatigue [Unknown]
